FAERS Safety Report 7479514-6 (Version None)
Quarter: 2011Q2

REPORT INFORMATION
  Report Type: 
  Country: None (occurrence: None)
  Receive Date: 20110513
  Receipt Date: 20110510
  Transmission Date: 20111010
  Serious: Yes (Other)
  Sender: FDA-Public Use
  Company Number: US-PFIZER INC-2011100294

PATIENT
  Age: 2 Year
  Sex: Female
  Weight: 13.605 kg

DRUGS (4)
  1. ALBUTEROL [Concomitant]
     Indication: ASTHMA
     Dosage: UNK
  2. BUMETANIDE [Concomitant]
     Indication: ASTHMA
     Dosage: UNK
  3. CORTISONE [Concomitant]
     Indication: ECZEMA
     Dosage: UNK
     Route: 061
  4. CHILDREN'S DIMETAPP COLD AND ALLERGY [Suspect]
     Indication: PRURITUS
     Dosage: UNK
     Dates: start: 20110509

REACTIONS (4)
  - ECZEMA [None]
  - ACCIDENTAL OVERDOSE [None]
  - OFF LABEL USE [None]
  - ACCIDENTAL DRUG INTAKE BY CHILD [None]
